FAERS Safety Report 13622113 (Version 1)
Quarter: 2017Q2

REPORT INFORMATION
  Report Type: Spontaneous
  Country: US (occurrence: US)
  Receive Date: 20170607
  Receipt Date: 20170607
  Transmission Date: 20170830
  Serious: No
  Sender: FDA-Public Use
  Company Number: US-ROCHE-1916684

PATIENT
  Age: 55 Year
  Sex: Female
  Weight: 51.55 kg

DRUGS (24)
  1. TAXOL [Concomitant]
     Active Substance: PACLITAXEL
     Route: 065
     Dates: start: 1995, end: 200107
  2. AVASTIN [Suspect]
     Active Substance: BEVACIZUMAB
     Indication: BREAST CANCER FEMALE
     Route: 065
     Dates: start: 2007
  3. NAVELBINE [Concomitant]
     Active Substance: VINORELBINE TARTRATE
     Dosage: 2 CYCLES
     Route: 065
     Dates: start: 1998
  4. HERCEPTIN [Suspect]
     Active Substance: TRASTUZUMAB
     Route: 065
     Dates: start: 201207
  5. PERJETA [Suspect]
     Active Substance: PERTUZUMAB
     Indication: BREAST CANCER METASTATIC
     Route: 065
     Dates: start: 2007
  6. ARIMIDEX [Concomitant]
     Active Substance: ANASTROZOLE
     Route: 065
     Dates: start: 201203, end: 201207
  7. XELODA [Suspect]
     Active Substance: CAPECITABINE
     Indication: BREAST CANCER FEMALE
     Route: 065
     Dates: start: 2001
  8. HERCEPTIN [Suspect]
     Active Substance: TRASTUZUMAB
     Indication: BREAST CANCER METASTATIC
     Route: 065
     Dates: start: 2007
  9. TAXOL [Concomitant]
     Active Substance: PACLITAXEL
     Route: 065
     Dates: start: 200902
  10. HERCEPTIN [Suspect]
     Active Substance: TRASTUZUMAB
     Route: 065
     Dates: start: 201203, end: 201207
  11. PERJETA [Suspect]
     Active Substance: PERTUZUMAB
     Route: 065
     Dates: start: 201207
  12. TAXOL [Concomitant]
     Active Substance: PACLITAXEL
     Dosage: FOR 2-3 YRS
     Route: 065
     Dates: start: 2003
  13. NAVELBINE [Concomitant]
     Active Substance: VINORELBINE TARTRATE
     Route: 065
     Dates: start: 201012, end: 2011
  14. ADRIAMYCIN [Concomitant]
     Active Substance: DOXORUBICIN HYDROCHLORIDE
     Route: 065
     Dates: start: 1992
  15. HERCEPTIN [Suspect]
     Active Substance: TRASTUZUMAB
     Route: 065
     Dates: start: 2009, end: 201012
  16. HERCEPTIN [Suspect]
     Active Substance: TRASTUZUMAB
     Route: 065
     Dates: start: 201012, end: 201104
  17. KADCYLA [Suspect]
     Active Substance: ADO-TRASTUZUMAB EMTANSINE
     Indication: PRODUCT USED FOR UNKNOWN INDICATION
     Route: 065
  18. MEGACE [Concomitant]
     Active Substance: MEGESTROL ACETATE
  19. GEMZAR [Concomitant]
     Active Substance: GEMCITABINE HYDROCHLORIDE
     Dosage: FOR SEVERAL MONTHS
     Route: 065
     Dates: start: 2001
  20. DOXIL [Concomitant]
     Active Substance: DOXORUBICIN HYDROCHLORIDE
     Dosage: 2 CYCLES
     Route: 065
  21. HERCEPTIN [Suspect]
     Active Substance: TRASTUZUMAB
     Route: 065
     Dates: start: 200902
  22. HERCEPTIN [Suspect]
     Active Substance: TRASTUZUMAB
     Route: 065
     Dates: start: 201112, end: 20120126
  23. TAMOXIFEN [Concomitant]
     Active Substance: TAMOXIFEN
     Route: 065
     Dates: start: 1995
  24. CARBOPLATIN. [Concomitant]
     Active Substance: CARBOPLATIN
     Route: 065
     Dates: start: 200902

REACTIONS (9)
  - Soft tissue infection [Unknown]
  - Pain [Unknown]
  - White blood cell count decreased [Unknown]
  - Mobility decreased [Unknown]
  - Ill-defined disorder [Unknown]
  - Nausea [Unknown]
  - Diarrhoea [Unknown]
  - Carcinoembryonic antigen increased [Recovering/Resolving]
  - Ejection fraction decreased [Unknown]

NARRATIVE: CASE EVENT DATE: 20141103
